FAERS Safety Report 9626325 (Version 2)
Quarter: 2013Q4

REPORT INFORMATION
  Report Type: Report from Study
  Country: US (occurrence: US)
  Receive Date: 20131016
  Receipt Date: 20131031
  Transmission Date: 20140711
  Serious: Yes (Other)
  Sender: FDA-Public Use
  Company Number: US-JNJFOC-20131007012

PATIENT
  Age: 17 Year
  Sex: Male

DRUGS (1)
  1. NUCYNTA [Suspect]
     Indication: HEADACHE
     Route: 065
     Dates: start: 20130410

REACTIONS (3)
  - Toxicity to various agents [Unknown]
  - Drug abuse [Unknown]
  - Overdose [Unknown]
